FAERS Safety Report 4822996-6 (Version None)
Quarter: 2005Q4

REPORT INFORMATION
  Report Type: 
  Country: None (occurrence: None)
  Receive Date: 20051108
  Receipt Date: 20051108
  Transmission Date: 20060501
  Serious: Yes (Hospitalization, Other)
  Sender: FDA-Public Use
  Company Number: None

PATIENT
  Sex: Male
  Weight: 71.9 kg

DRUGS (7)
  1. CYTARABINE [Suspect]
     Indication: ACUTE LYMPHOCYTIC LEUKAEMIA
     Dosage: SEE IMAGE
     Dates: start: 20050824, end: 20050824
  2. CYTARABINE [Suspect]
     Indication: ACUTE LYMPHOCYTIC LEUKAEMIA
     Dosage: SEE IMAGE
     Dates: start: 20050825
  3. DAUNORUBICIN [Suspect]
     Dosage: SEE IMAGE
     Route: 042
     Dates: start: 20050825, end: 20050914
  4. DEXAMETHASONE [Suspect]
     Dosage: SEE IMAGE
     Route: 048
     Dates: start: 20050825, end: 20050906
  5. METHOTREXATE [Suspect]
     Dosage: SEE IMAGE
     Dates: start: 20050901, end: 20050919
  6. PEG-L-ASPARAGINASE [Suspect]
     Dosage: SEE IMAGE
     Route: 030
     Dates: start: 20050828, end: 20050828
  7. VINCRISTINE SULFATE [Suspect]
     Dosage: SEE IMAGE
     Route: 042
     Dates: start: 20050825, end: 20050914

REACTIONS (4)
  - HYPOAESTHESIA [None]
  - MONOPLEGIA [None]
  - PARAESTHESIA [None]
  - PROCEDURAL COMPLICATION [None]
